FAERS Safety Report 20064686 (Version 2)
Quarter: 2021Q4

REPORT INFORMATION
  Report Type: Spontaneous
  Country: ZA (occurrence: ZA)
  Receive Date: 20211112
  Receipt Date: 20211129
  Transmission Date: 20220304
  Serious: Yes (Other)
  Sender: FDA-Public Use
  Company Number: ZA-LUNDBECK-DKLU3040262

PATIENT
  Age: 36 Year
  Sex: Male

DRUGS (2)
  1. REXULTI [Suspect]
     Active Substance: BREXPIPRAZOLE
     Indication: Schizophrenia
     Dosage: 3 MG, QD
     Route: 048
     Dates: start: 2021
  2. REXULTI [Suspect]
     Active Substance: BREXPIPRAZOLE
     Dosage: 1 MG
     Route: 048

REACTIONS (8)
  - Hallucination, auditory [Recovering/Resolving]
  - Paranoia [Recovered/Resolved]
  - Persecutory delusion [Recovered/Resolved]
  - Abnormal behaviour [Unknown]
  - Condition aggravated [Unknown]
  - Disease recurrence [Unknown]
  - Agitation [Unknown]
  - Irritability [Unknown]

NARRATIVE: CASE EVENT DATE: 20210101
